FAERS Safety Report 20570728 (Version 1)
Quarter: 2022Q1

REPORT INFORMATION
  Report Type: Spontaneous
  Country: ES (occurrence: ES)
  Receive Date: 20220309
  Receipt Date: 20220309
  Transmission Date: 20220423
  Serious: Yes (Life-Threatening)
  Sender: FDA-Public Use
  Company Number: None

PATIENT
  Age: 54 Year
  Sex: Female

DRUGS (5)
  1. AMOXICILLIN [Suspect]
     Active Substance: AMOXICILLIN
     Indication: Pharyngitis
     Dosage: 1000 MG; AMOXICILLIN (108A)
     Route: 048
     Dates: start: 20220208, end: 20220208
  2. INDAPAMIDE\PERINDOPRIL [Concomitant]
     Active Substance: INDAPAMIDE\PERINDOPRIL
     Indication: Hypertension
     Dosage: 1 DF; PERINDOPRIL/INDAPAMIDE 4 MG/1.25 MG 30 TABLETS
     Route: 048
     Dates: start: 20190905
  3. AMOXICILLIN [Concomitant]
     Active Substance: AMOXICILLIN
     Indication: Pharyngitis
     Dosage: 750 MG/8H; AMOXICILLIN PENSA PHARMA 750 MG DISPERSIBLE TABLETS EFG, 30 TABLETS
     Route: 048
     Dates: start: 20220120, end: 20220130
  4. FLUTICASONE PROPIONATE [Concomitant]
     Active Substance: FLUTICASONE PROPIONATE
     Indication: Asthma
     Dosage: 2INH/12H; 2 DF; FLIXOTIDE ACCUHALER 500 MICROGRAMS, POWDER FOR INHALATION, 1 INHALER OF 60 DOSES
     Route: 055
     Dates: start: 20141120
  5. VENTOLIN [Concomitant]
     Active Substance: ALBUTEROL SULFATE
     Indication: Asthma
     Dosage: 2 INH/6H; 2 DF; INHALATION, SUSPENSION; VENTOLIN 100 MICROGRAMS/INHALATION, PRESSURE PACK INHALATION
     Route: 055
     Dates: start: 20140306

REACTIONS (1)
  - Anaphylactic shock [Recovered/Resolved]

NARRATIVE: CASE EVENT DATE: 20220208
